FAERS Safety Report 8520968-1 (Version None)
Quarter: 2012Q3

REPORT INFORMATION
  Report Type: 
  Country: None (occurrence: None)
  Receive Date: 20120706
  Receipt Date: 20120627
  Transmission Date: 20120928
  Serious: Yes (Other)
  Sender: FDA-Public Use
  Company Number: 2012060152

PATIENT
  Sex: Female

DRUGS (1)
  1. FELBATOL [Suspect]
     Dosage: 6 TABLET (3 TABLET, 2 IN 1 D), ORAL, 1 TABLET (1 TABLET, 1 IN 1 D), ORAL
     Route: 048
     Dates: start: 20080101

REACTIONS (1)
  - CONVULSION [None]
